FAERS Safety Report 13662636 (Version 1)
Quarter: 2017Q2

REPORT INFORMATION
  Report Type: Spontaneous
  Country: US (occurrence: US)
  Receive Date: 20170616
  Receipt Date: 20170616
  Transmission Date: 20170830
  Serious: Yes (Hospitalization)
  Sender: FDA-Public Use
  Company Number: None

PATIENT
  Age: 64 Year
  Sex: Female
  Weight: 68.5 kg

DRUGS (1)
  1. SPIRONOLACTONE. [Suspect]
     Active Substance: SPIRONOLACTONE
     Dosage: MG PO
     Route: 048
     Dates: start: 20161101, end: 20161229

REACTIONS (3)
  - Renal tubular acidosis [None]
  - Fall [None]
  - Acute kidney injury [None]

NARRATIVE: CASE EVENT DATE: 20161229
